FAERS Safety Report 8162976-9 (Version None)
Quarter: 2012Q1

REPORT INFORMATION
  Report Type: 
  Country: None (occurrence: None)
  Receive Date: 20120103
  Receipt Date: 20110907
  Transmission Date: 20120608
  Serious: Yes (Other)
  Sender: FDA-Public Use
  Company Number: AE-2011-001522

PATIENT

DRUGS (1)
  1. INCIVEK [Suspect]

REACTIONS (1)
  - ANAEMIA [None]
